FAERS Safety Report 18877679 (Version 1)
Quarter: 2021Q1

REPORT INFORMATION
  Report Type: Spontaneous
  Country: US (occurrence: US)
  Receive Date: 20210210
  Receipt Date: 20210210
  Transmission Date: 20210420
  Serious: Yes (Hospitalization)
  Sender: FDA-Public Use
  Company Number: None

PATIENT
  Age: 36 Year
  Sex: Male

DRUGS (8)
  1. AMBRISENTAN 10MG TABLETS 30/BO: 10MG MYLAN [Suspect]
     Active Substance: AMBRISENTAN
     Indication: PULMONARY ARTERIAL HYPERTENSION
     Route: 048
     Dates: start: 20190919
  2. TADALIFAL [Concomitant]
  3. SPIRONOLACTONE. [Concomitant]
     Active Substance: SPIRONOLACTONE
  4. FUROSEMIDE. [Concomitant]
     Active Substance: FUROSEMIDE
  5. PRADAXA [Concomitant]
     Active Substance: DABIGATRAN ETEXILATE MESYLATE
  6. METRORMIN [Concomitant]
  7. SELEXIPAG [Concomitant]
     Active Substance: SELEXIPAG
  8. BETAMETHASONE DIPROPIONATE TOP OINT [Concomitant]

REACTIONS (4)
  - COVID-19 pneumonia [None]
  - Pulmonary embolism [None]
  - Deep vein thrombosis [None]
  - Respiratory failure [None]

NARRATIVE: CASE EVENT DATE: 20210113
